FAERS Safety Report 16053373 (Version 6)
Quarter: 2019Q4

REPORT INFORMATION
  Report Type: Report from Study
  Country: JP (occurrence: JP)
  Receive Date: 20190308
  Receipt Date: 20191021
  Transmission Date: 20200122
  Serious: Yes (Hospitalization, Other)
  Sender: FDA-Public Use
  Company Number: JP-ALLERGAN-1909397US

PATIENT
  Sex: Male

DRUGS (3)
  1. BOTULINUM TOXIN TYPE A - GENERAL (9060X) [Suspect]
     Active Substance: BOTULINUM TOXIN TYPE A
     Indication: MUSCLE SPASMS
     Dosage: UNK UNK, SINGLE
     Route: 030
     Dates: start: 20190513, end: 20190513
  2. BOTULINUM TOXIN TYPE A - GENERAL (9060X) [Suspect]
     Active Substance: BOTULINUM TOXIN TYPE A
     Dosage: UNK, SINGLE
     Route: 030
     Dates: start: 2013, end: 2013
  3. BOTULINUM TOXIN TYPE A - GENERAL (9060X) [Suspect]
     Active Substance: BOTULINUM TOXIN TYPE A
     Dosage: UNK, SINGLE
     Route: 030
     Dates: start: 20190107, end: 20190107

REACTIONS (15)
  - Decreased appetite [Unknown]
  - Pyrexia [Recovered/Resolved]
  - Infection [Recovered/Resolved]
  - Weight decreased [Unknown]
  - Muscular weakness [Unknown]
  - Fatigue [Unknown]
  - Asthenia [Unknown]
  - Movement disorder [Unknown]
  - Therapeutic product effect decreased [Unknown]
  - Taste disorder [Unknown]
  - Hypoaesthesia [Unknown]
  - Musculoskeletal stiffness [Unknown]
  - Cholecystectomy [Unknown]
  - Pain [Unknown]
  - Gait disturbance [Unknown]

NARRATIVE: CASE EVENT DATE: 2015
